FAERS Safety Report 8991811 (Version 1)
Quarter: 2012Q4

REPORT INFORMATION
  Report Type: 
  Country: US (occurrence: US)
  Receive Date: 20121231
  Receipt Date: 20121231
  Transmission Date: 20130627
  Serious: Yes (Other)
  Sender: FDA-Public Use
  Company Number: US-JNJFOC-20121209646

PATIENT
  Age: 75 Year
  Sex: Female
  Weight: 47.63 kg

DRUGS (4)
  1. XARELTO [Suspect]
     Indication: CEREBROVASCULAR ACCIDENT PROPHYLAXIS
     Route: 048
     Dates: start: 2012
  2. XARELTO [Suspect]
     Indication: ATRIAL FIBRILLATION
     Route: 048
     Dates: start: 2012
  3. VALIUM [Concomitant]
     Indication: DIZZINESS
     Route: 065
  4. LEVOTHYROXINE [Concomitant]
     Indication: PRODUCT USED FOR UNKNOWN INDICATION
     Route: 065

REACTIONS (4)
  - Dizziness [Recovering/Resolving]
  - Vertigo [Recovering/Resolving]
  - Syncope [Recovering/Resolving]
  - Fall [Unknown]
